FAERS Safety Report 9197743 (Version 1)
Quarter: 2013Q1

REPORT INFORMATION
  Report Type: Spontaneous
  Country: GB (occurrence: GB)
  Receive Date: 20130328
  Receipt Date: 20130328
  Transmission Date: 20140127
  Serious: Yes (Other)
  Sender: FDA-Public Use
  Company Number: GB-TEVA-393080ISR

PATIENT
  Age: 66 Year
  Sex: Female
  Weight: 83.8 kg

DRUGS (5)
  1. CLARITHROMYCIN [Suspect]
     Indication: LOWER RESPIRATORY TRACT INFECTION
     Dates: start: 20130214
  2. OMEPRAZOLE [Concomitant]
     Indication: PROPHYLAXIS
     Dates: start: 20130214
  3. DOXYCYCLINE [Concomitant]
     Indication: LOWER RESPIRATORY TRACT INFECTION
     Dates: start: 20130207
  4. INHALERS [Concomitant]
     Indication: ASTHMA
  5. STEROID NOS [Concomitant]

REACTIONS (3)
  - Diarrhoea [Unknown]
  - Malaise [Unknown]
  - Adverse drug reaction [Unknown]
